FAERS Safety Report 15951688 (Version 2)
Quarter: 2019Q2

REPORT INFORMATION
  Report Type: Spontaneous
  Country: US (occurrence: US)
  Receive Date: 20190212
  Receipt Date: 20190415
  Transmission Date: 20190711
  Serious: Yes (Other)
  Sender: FDA-Public Use
  Company Number: US-BAYER-2019-025081

PATIENT
  Age: 45 Year
  Sex: Male

DRUGS (1)
  1. KOGENATE FS [Suspect]
     Active Substance: ANTIHEMOPHILIC FACTOR, HUMAN RECOMBINANT
     Indication: FACTOR VIII DEFICIENCY
     Dosage: 6200 U, TIW AND PRN
     Route: 042
     Dates: start: 20181231

REACTIONS (8)
  - Haematuria [None]
  - Nephrolithiasis [None]
  - Abdominal pain [None]
  - Faeces discoloured [None]
  - Urinary tract infection [None]
  - Haemorrhage [None]
  - Dizziness [None]
  - Asthenia [None]

NARRATIVE: CASE EVENT DATE: 201901
